FAERS Safety Report 10205192 (Version 1)
Quarter: 2014Q2

REPORT INFORMATION
  Report Type: Spontaneous
  Country: PL (occurrence: PL)
  Receive Date: 20140529
  Receipt Date: 20140529
  Transmission Date: 20141212
  Serious: Yes (Hospitalization)
  Sender: FDA-Public Use
  Company Number: PL-JNJFOC-20140515043

PATIENT
  Age: 59 Year
  Sex: Male
  Weight: 105.5 kg

DRUGS (7)
  1. XARELTO [Suspect]
     Indication: VENTRICULAR TACHYCARDIA
     Route: 048
     Dates: start: 20140219, end: 20140221
  2. AMLOZEK [Concomitant]
     Route: 048
  3. SPIRONOL [Concomitant]
     Route: 048
  4. GLUCOPHAGE (METFORMIN HCL) [Concomitant]
     Route: 048
  5. CARVEDILOL [Concomitant]
     Route: 048
  6. FUROSEMID [Concomitant]
     Route: 048
  7. TRITACE [Concomitant]
     Route: 048

REACTIONS (1)
  - Rash maculo-papular [Recovered/Resolved]
